FAERS Safety Report 17639432 (Version 1)
Quarter: 2020Q2

REPORT INFORMATION
  Report Type: Spontaneous
  Country: CN (occurrence: CN)
  Receive Date: 20200407
  Receipt Date: 20200407
  Transmission Date: 20200713
  Serious: Yes (Life-Threatening, Hospitalization, Other)
  Sender: FDA-Public Use
  Company Number: CN-PFIZER INC-2020139764

PATIENT
  Age: 28 Year
  Sex: Male
  Weight: 50 kg

DRUGS (5)
  1. ZAVEDOS [Suspect]
     Active Substance: IDARUBICIN
     Dosage: 10 MG, 1X/DAY
     Route: 041
     Dates: start: 20200219, end: 20200220
  2. CYTOSAR [Suspect]
     Active Substance: CYTARABINE
     Indication: ACUTE MYELOID LEUKAEMIA
     Dosage: 3 G, 2X/DAY
     Route: 041
     Dates: start: 20200218, end: 20200221
  3. SODIUM CHLORIDE. [Concomitant]
     Active Substance: SODIUM CHLORIDE
     Indication: ACUTE MYELOID LEUKAEMIA
     Dosage: 250 ML, 2X/DAY
     Route: 041
     Dates: start: 20200218, end: 20200221
  4. ZAVEDOS [Suspect]
     Active Substance: IDARUBICIN
     Indication: ACUTE MYELOID LEUKAEMIA
     Dosage: 20 MG, 1X/DAY
     Route: 041
     Dates: start: 20200218, end: 20200218
  5. SODIUM CHLORIDE. [Concomitant]
     Active Substance: SODIUM CHLORIDE
     Indication: ACUTE MYELOID LEUKAEMIA
     Dosage: 30 ML, 1X/DAY
     Route: 041
     Dates: start: 20200218, end: 20200220

REACTIONS (9)
  - Asthenia [Unknown]
  - Neutrophil count decreased [Recovering/Resolving]
  - Full blood count decreased [Recovering/Resolving]
  - Haemoglobin decreased [Recovering/Resolving]
  - White blood cell count decreased [Recovering/Resolving]
  - Dizziness [Unknown]
  - Granulocyte count decreased [Unknown]
  - Platelet count decreased [Recovering/Resolving]
  - Bone marrow failure [Unknown]

NARRATIVE: CASE EVENT DATE: 202002
